FAERS Safety Report 11911753 (Version 1)
Quarter: 2016Q1

REPORT INFORMATION
  Report Type: Spontaneous
  Country: JP (occurrence: JP)
  Receive Date: 20160112
  Receipt Date: 20160112
  Transmission Date: 20160526
  Serious: Yes (Life-Threatening, Other)
  Sender: FDA-Public Use
  Company Number: PHHY2015JP173159

PATIENT
  Age: 62 Year
  Sex: Male

DRUGS (4)
  1. DANTROLENE [Concomitant]
     Active Substance: DANTROLENE
     Indication: NEUROLEPTIC MALIGNANT SYNDROME
     Dosage: 40 MG, QD
     Route: 042
  2. IMIPRAMINE [Suspect]
     Active Substance: IMIPRAMINE
     Dosage: 175 MG, QD
     Route: 065
  3. LITHIUM CARBONATE. [Concomitant]
     Active Substance: LITHIUM CARBONATE
     Indication: MOOD DISORDER DUE TO A GENERAL MEDICAL CONDITION
     Dosage: 600 MG, QD
     Route: 065
  4. IMIPRAMINE [Suspect]
     Active Substance: IMIPRAMINE
     Indication: MOOD DISORDER DUE TO A GENERAL MEDICAL CONDITION
     Dosage: 100 MG, QD
     Route: 065

REACTIONS (3)
  - Dehydration [Unknown]
  - Acute kidney injury [Recovered/Resolved]
  - Serotonin syndrome [Recovered/Resolved]
